FAERS Safety Report 9778767 (Version 1)
Quarter: 2013Q4

REPORT INFORMATION
  Report Type: Report from Study
  Country: JP (occurrence: JP)
  Receive Date: 20131223
  Receipt Date: 20131223
  Transmission Date: 20140711
  Serious: Yes (Hospitalization)
  Sender: FDA-Public Use
  Company Number: JP-IAC JAPAN XML-GBR-2013-0016719

PATIENT
  Age: 81 Year
  Sex: Female
  Weight: 48 kg

DRUGS (5)
  1. BTDS PATCH [Suspect]
     Indication: PAIN
     Dosage: 10 MCG, Q1H
     Route: 062
     Dates: start: 20120630, end: 20130216
  2. BTDS PATCH [Suspect]
     Dosage: 5 MCG, Q1H
     Route: 062
     Dates: start: 20120618, end: 20120629
  3. BLOPRESS [Concomitant]
     Indication: HYPERTENSION
     Dosage: 8 MG, DAILY
     Route: 048
     Dates: start: 20020213, end: 20130216
  4. URSO                               /00465701/ [Concomitant]
     Indication: CHRONIC HEPATITIS
     Dosage: 300 MG, DAILY
     Route: 048
     Dates: start: 20020213, end: 20130216
  5. TAKEPRON [Concomitant]
     Indication: GASTROOESOPHAGEAL REFLUX DISEASE
     Dosage: 15 MG, DAILY
     Route: 048
     Dates: start: 20100121, end: 20130216

REACTIONS (3)
  - Fall [Unknown]
  - Thoracic vertebral fracture [Recovered/Resolved]
  - Lumbar vertebral fracture [Recovered/Resolved]
